FAERS Safety Report 21849302 (Version 1)
Quarter: 2023Q1

REPORT INFORMATION
  Report Type: Spontaneous
  Country: CA (occurrence: CA)
  Receive Date: 20230111
  Receipt Date: 20230111
  Transmission Date: 20230417
  Serious: Yes (Hospitalization)
  Sender: FDA-Public Use
  Company Number: CA-FreseniusKabi-FK202300339

PATIENT
  Age: 70 Year
  Sex: Male

DRUGS (15)
  1. IRINOTECAN [Suspect]
     Active Substance: IRINOTECAN
     Indication: Pancreatic carcinoma
     Dosage: 120 MG PER METER SQUARE
     Route: 065
  2. IRINOTECAN [Suspect]
     Active Substance: IRINOTECAN
     Indication: Panniculitis
  3. IRINOTECAN [Suspect]
     Active Substance: IRINOTECAN
     Indication: Metastases to liver
  4. OXALIPLATIN [Suspect]
     Active Substance: OXALIPLATIN
     Indication: Pancreatic carcinoma
     Route: 065
  5. OXALIPLATIN [Suspect]
     Active Substance: OXALIPLATIN
     Indication: Panniculitis
  6. OXALIPLATIN [Suspect]
     Active Substance: OXALIPLATIN
     Indication: Metastases to liver
  7. FLUOROURACIL [Suspect]
     Active Substance: FLUOROURACIL
     Indication: Pancreatic carcinoma
     Route: 065
  8. FLUOROURACIL [Suspect]
     Active Substance: FLUOROURACIL
     Indication: Panniculitis
  9. FLUOROURACIL [Suspect]
     Active Substance: FLUOROURACIL
     Indication: Metastases to liver
  10. LEUCOVORIN [Suspect]
     Active Substance: LEUCOVORIN
     Indication: Pancreatic carcinoma
     Route: 065
  11. LEUCOVORIN [Suspect]
     Active Substance: LEUCOVORIN
     Indication: Panniculitis
  12. LEUCOVORIN [Suspect]
     Active Substance: LEUCOVORIN
     Indication: Metastases to liver
  13. DEXAMETHASONE [Concomitant]
     Active Substance: DEXAMETHASONE
     Indication: Product used for unknown indication
     Route: 065
  14. PREDNISOLONE [Concomitant]
     Active Substance: PREDNISOLONE
     Indication: Product used for unknown indication
     Dosage: 15 MG DAILY TAPERING DOSE
     Route: 065
  15. NAPROXEN [Concomitant]
     Active Substance: NAPROXEN
     Indication: Product used for unknown indication
     Route: 065

REACTIONS (5)
  - Confusional state [Unknown]
  - Polyarthritis [Unknown]
  - Pyrexia [Unknown]
  - Peripheral sensory neuropathy [Unknown]
  - Neurotoxicity [Unknown]
